FAERS Safety Report 9391517 (Version 2)
Quarter: 2013Q3

REPORT INFORMATION
  Report Type: Report from Study
  Country: FR (occurrence: FR)
  Receive Date: 20130709
  Receipt Date: 20130730
  Transmission Date: 20140515
  Serious: Yes (Hospitalization)
  Sender: FDA-Public Use
  Company Number: FR-CELGENEUS-056-21880-13064216

PATIENT
  Age: 61 Year
  Sex: Male

DRUGS (3)
  1. REVLIMID\PLACEBO [Suspect]
     Indication: DIFFUSE LARGE B-CELL LYMPHOMA
     Dosage: 15 MILLIGRAM
     Route: 048
     Dates: start: 20130318
  2. REVLIMID\PLACEBO [Suspect]
     Dosage: 15 MILLIGRAM
     Route: 048
     Dates: start: 20130610
  3. ASPIRINE [Concomitant]
     Indication: THROMBOSIS PROPHYLAXIS
     Route: 065
     Dates: start: 20130318

REACTIONS (1)
  - Lung disorder [Not Recovered/Not Resolved]
